FAERS Safety Report 18314196 (Version 1)
Quarter: 2020Q3

REPORT INFORMATION
  Report Type: Spontaneous
  Country: TW (occurrence: TW)
  Receive Date: 20200925
  Receipt Date: 20200925
  Transmission Date: 20201103
  Serious: Yes (Other)
  Sender: FDA-Public Use
  Company Number: TW-ABBVIE-20K-153-3582884-00

PATIENT

DRUGS (1)
  1. IMBRUVICA [Suspect]
     Active Substance: IBRUTINIB
     Indication: MANTLE CELL LYMPHOMA
     Route: 048

REACTIONS (7)
  - Respiratory tract infection [Unknown]
  - Sinusitis fungal [Unknown]
  - Pneumocystis jirovecii pneumonia [Unknown]
  - Haemorrhage [Recovering/Resolving]
  - Haemothorax [Recovering/Resolving]
  - Bullous haemorrhagic dermatosis [Recovering/Resolving]
  - Cytopenia [Unknown]
